FAERS Safety Report 8456965-4 (Version None)
Quarter: 2012Q2

REPORT INFORMATION
  Report Type: 
  Country: None (occurrence: None)
  Receive Date: 20120621
  Receipt Date: 20111121
  Transmission Date: 20120825
  Serious: No
  Sender: FDA-Public Use
  Company Number: US-BRISTOL-MYERS SQUIBB COMPANY-16241572

PATIENT

DRUGS (1)
  1. ETOPOPHOS PRESERVATIVE FREE [Suspect]
     Dosage: 10 VIALS OF 100 MG

REACTIONS (1)
  - INCORRECT STORAGE OF DRUG [None]
